FAERS Safety Report 13439442 (Version 4)
Quarter: 2018Q3

REPORT INFORMATION
  Report Type: Report from Study
  Country: CA (occurrence: CA)
  Receive Date: 20170412
  Receipt Date: 20180703
  Transmission Date: 20181010
  Serious: Yes (Other)
  Sender: FDA-Public Use
  Company Number: CA-ROCHE-1918963

PATIENT
  Age: 71 Year
  Sex: Female

DRUGS (6)
  1. FOLIC ACID. [Concomitant]
     Active Substance: FOLIC ACID
  2. DEXILANT [Concomitant]
     Active Substance: DEXLANSOPRAZOLE
  3. METHOTREXATE. [Concomitant]
     Active Substance: METHOTREXATE
  4. ACTEMRA [Suspect]
     Active Substance: TOCILIZUMAB
     Indication: RHEUMATOID ARTHRITIS
     Dosage: EVERY OTHER WEEK; ON HOLD
     Route: 058
     Dates: start: 20170322
  5. METFORMIN [Concomitant]
     Active Substance: METFORMIN HYDROCHLORIDE
  6. RITUXAN [Suspect]
     Active Substance: RITUXIMAB
     Indication: RHEUMATOID ARTHRITIS
     Route: 042
     Dates: start: 20180628

REACTIONS (10)
  - Lymphadenopathy [Unknown]
  - Inflammation [Unknown]
  - Feeling cold [Unknown]
  - Swelling [Not Recovered/Not Resolved]
  - Blood pressure increased [Unknown]
  - Pain [Unknown]
  - Pruritus [Unknown]
  - Feeling hot [Unknown]
  - Nervousness [Unknown]
  - Acne [Unknown]

NARRATIVE: CASE EVENT DATE: 20170324
